FAERS Safety Report 6725148-8 (Version None)
Quarter: 2010Q2

REPORT INFORMATION
  Report Type: 
  Country: None (occurrence: None)
  Receive Date: 20100513
  Receipt Date: 20100513
  Transmission Date: 20101027
  Serious: Yes (Hospitalization)
  Sender: FDA-Public Use
  Company Number: None

PATIENT
  Age: 92 Year
  Sex: Female
  Weight: 73 kg

DRUGS (8)
  1. PHENAZOPYRIDINE HCL TAB [Suspect]
     Indication: URINARY TRACT INFECTION
     Dosage: 200 MG TID OVER 48 HOURS ORAL
     Route: 048
     Dates: start: 20100421, end: 20100422
  2. ATENOLOL [Concomitant]
  3. LISINOPRIL [Concomitant]
  4. CLONIDINE [Concomitant]
  5. CILOSTAZOL [Concomitant]
  6. LEVOTHYROXINE SODIUM [Concomitant]
  7. NAPROXEN [Concomitant]
  8. LEVAQUIN [Concomitant]

REACTIONS (2)
  - CHEST DISCOMFORT [None]
  - PANCREATITIS [None]
